FAERS Safety Report 4576918-6 (Version None)
Quarter: 2005Q1

REPORT INFORMATION
  Report Type: 
  Country: None (occurrence: None)
  Receive Date: 20050208
  Receipt Date: 20050104
  Transmission Date: 20050727
  Serious: Yes (Hospitalization, Other)
  Sender: FDA-Public Use
  Company Number: 2004S1003632

PATIENT
  Age: 52 Year
  Sex: Male

DRUGS (12)
  1. MICARDIS [Suspect]
     Dates: end: 20041108
  2. COZAAR [Suspect]
     Dates: end: 20041108
  3. METOLAZONE [Suspect]
     Dates: start: 20041107
  4. FUROSEMIDE [Suspect]
     Dates: start: 20041101, end: 20041108
  5. VERAPAMIL [Suspect]
     Indication: HYPERTENSION
  6. METOPROLOL [Concomitant]
  7. ROSUVASTATIN [Concomitant]
  8. PAROXETINE [Concomitant]
  9. ASPIRIN [Concomitant]
  10. GEMFIBROZIL [Concomitant]
  11. NPH INSULIN [Concomitant]
  12. ALLOPURINOL [Concomitant]

REACTIONS (23)
  - ACUTE MYOCARDIAL INFARCTION [None]
  - ASTHENIA [None]
  - ATRIAL NATRIURETIC PEPTIDE INCREASED [None]
  - BLOOD CREATINE PHOSPHOKINASE INCREASED [None]
  - BLOOD GLUCOSE INCREASED [None]
  - CARDIAC FAILURE [None]
  - CARDIAC FAILURE CONGESTIVE [None]
  - DEHYDRATION [None]
  - DIASTOLIC DYSFUNCTION [None]
  - DIZZINESS [None]
  - DYSPNOEA EXERTIONAL [None]
  - EJECTION FRACTION DECREASED [None]
  - ELECTROCARDIOGRAM ST SEGMENT DEPRESSION [None]
  - FATIGUE [None]
  - OEDEMA PERIPHERAL [None]
  - ORTHOPNOEA [None]
  - POLYURIA [None]
  - REFUSAL OF TREATMENT BY PATIENT [None]
  - RENAL FAILURE ACUTE [None]
  - RENAL FAILURE CHRONIC [None]
  - SCAN MYOCARDIAL PERFUSION ABNORMAL [None]
  - SYNCOPE [None]
  - VENTRICULAR DYSKINESIA [None]
